FAERS Safety Report 23883664 (Version 1)
Quarter: 2024Q2

REPORT INFORMATION
  Report Type: Spontaneous
  Country: DK (occurrence: DK)
  Receive Date: 20240522
  Receipt Date: 20240522
  Transmission Date: 20240716
  Serious: Yes (Hospitalization, Other)
  Sender: FDA-Public Use
  Company Number: DK-MLMSERVICE-20240507-PI051932-00330-1

PATIENT

DRUGS (28)
  1. VENLAFAXINE [Suspect]
     Active Substance: VENLAFAXINE HYDROCHLORIDE
     Indication: Anxiety
     Route: 065
  2. VENLAFAXINE [Suspect]
     Active Substance: VENLAFAXINE HYDROCHLORIDE
     Indication: Depression
     Dosage: STARTED ON 09-SEP
     Route: 065
  3. VENLAFAXINE [Suspect]
     Active Substance: VENLAFAXINE HYDROCHLORIDE
     Dosage: STARTED ON 16-SEP
     Route: 065
  4. VENLAFAXINE [Suspect]
     Active Substance: VENLAFAXINE HYDROCHLORIDE
     Dosage: STARTED ON 23-SEP
     Route: 065
  5. FUROSEMIDE [Suspect]
     Active Substance: FUROSEMIDE
     Indication: Urinary retention
     Dosage: 20 MG DAILY 3 TIMES WEEKLY
     Route: 065
  6. FUROSEMIDE [Suspect]
     Active Substance: FUROSEMIDE
     Dosage: (10 MG 3 TIMES WEEK), STARTED ON 29-SEP
     Route: 065
  7. FUROSEMIDE [Suspect]
     Active Substance: FUROSEMIDE
     Dosage: 20 MG 3 TIMES WEEK
     Route: 065
  8. DOXEPIN [Suspect]
     Active Substance: DOXEPIN
     Indication: Depression
     Route: 065
  9. DOXEPIN [Suspect]
     Active Substance: DOXEPIN
     Indication: Anxiety
     Dosage: OCCASIONAL EXTRA 50 MG FROM AN OLDER VIAL
     Route: 065
  10. DOXEPIN [Suspect]
     Active Substance: DOXEPIN
     Dosage: 100 MG IN THE MORNING AND 150 MG AT BEDTIME, STARTED ON 09-SEP
     Route: 065
  11. DOXEPIN [Suspect]
     Active Substance: DOXEPIN
     Dosage: 100 MG IN THE MORNING AND 100 MG AT BED, STARTED ON 28-SEP
     Route: 065
  12. DOXEPIN [Suspect]
     Active Substance: DOXEPIN
     Dosage: 50 MG IN THE MORNING AND 100 MG AT BEDTIME, STARTED ON 26-OCT
     Route: 065
  13. CALCIUM [Concomitant]
     Active Substance: CALCIUM
     Indication: Product used for unknown indication
     Dosage: REGULAR BASIS
     Route: 065
  14. ALBUTEROL [Concomitant]
     Active Substance: ALBUTEROL
     Indication: Product used for unknown indication
     Dosage: AS NECESSARY
     Route: 065
  15. SEMAGLUTIDE [Concomitant]
     Active Substance: SEMAGLUTIDE
     Indication: Product used for unknown indication
     Dosage: REGULAR BASIS
     Route: 065
  16. PANTOPRAZOLE [Concomitant]
     Active Substance: PANTOPRAZOLE
     Indication: Product used for unknown indication
     Dosage: REGULAR BASIS
     Route: 065
  17. INSULIN GLARGINE [Concomitant]
     Active Substance: INSULIN GLARGINE
     Indication: Product used for unknown indication
     Dosage: REGULAR BASIS
     Route: 065
  18. Fluticasone Furoate/ Vilanterol [Concomitant]
     Indication: Product used for unknown indication
     Dosage: AS NECESSARY
     Route: 065
  19. DICLOFENAC [Concomitant]
     Active Substance: DICLOFENAC
     Indication: Product used for unknown indication
     Dosage: AS NECESSARY
     Route: 065
  20. VITAMIN D [Concomitant]
     Active Substance: VITAMIN D NOS
     Indication: Product used for unknown indication
     Dosage: REGULAR BASIS
     Route: 065
  21. PSEUDOEPHEDRINE [Concomitant]
     Active Substance: PSEUDOEPHEDRINE
     Indication: Product used for unknown indication
     Dosage: AS-NEEDED
     Route: 065
  22. COLLAGEN [Concomitant]
     Active Substance: COLLAGEN
     Indication: Product used for unknown indication
     Dosage: REGULAR BASIS
     Route: 065
  23. CYANOCOBALAMIN [Concomitant]
     Active Substance: CYANOCOBALAMIN
     Indication: Product used for unknown indication
     Dosage: REGULAR BASIS
     Route: 065
  24. ROSUVASTATIN [Concomitant]
     Active Substance: ROSUVASTATIN
     Indication: Product used for unknown indication
     Dosage: REGULAR BASIS
     Route: 065
  25. DAPAGLIFLOZIN [Concomitant]
     Active Substance: DAPAGLIFLOZIN
     Indication: Product used for unknown indication
     Dosage: REGULAR BASIS
     Route: 065
  26. CLOTRIMAZOLE [Concomitant]
     Active Substance: CLOTRIMAZOLE
     Indication: Product used for unknown indication
     Dosage: REGULAR BASIS
     Route: 065
  27. MAGNESIUM [Concomitant]
     Active Substance: MAGNESIUM
     Indication: Product used for unknown indication
     Dosage: REGULAR BASIS
     Route: 065
  28. Risedronate/Risedronic Acid [Concomitant]
     Indication: Product used for unknown indication
     Dosage: REGULAR BASIS
     Route: 065

REACTIONS (1)
  - Cognitive disorder [Recovering/Resolving]
